FAERS Safety Report 6523308-2 (Version None)
Quarter: 2009Q4

REPORT INFORMATION
  Report Type: 
  Country: None (occurrence: None)
  Receive Date: 20091231
  Receipt Date: 20091221
  Transmission Date: 20100525
  Serious: Yes (Hospitalization)
  Sender: FDA-Public Use
  Company Number: IN-SOLVAY-00309007875

PATIENT
  Age: 10796 Day
  Sex: Male
  Weight: 48 kg

DRUGS (9)
  1. T. AMRYL [Concomitant]
     Indication: DIABETES MELLITUS
     Dosage: DAILY DOSE: 4 MILLIGRAM(S)
     Route: 048
     Dates: start: 20081101, end: 20091211
  2. T. AMRYL [Concomitant]
     Dosage: DAILY DOSE: 2 MILLIGRAM(S)
     Route: 048
     Dates: start: 20091215
  3. CREON [Suspect]
     Indication: PANCREATIC INSUFFICIENCY
     Dosage: DAILY DOSE: 240,000; AS USED: 40,000; FREQUENCY: 6 PER DAY
     Route: 048
     Dates: start: 20090223
  4. INJ MIXTARD [Concomitant]
     Indication: DIABETES MELLITUS
     Dosage: DAILY DOSE:  12 UNITS, AS USED: 12 UNITS; FREQUENCY: ONCE A DAY
     Route: 058
     Dates: start: 20090824, end: 20091211
  5. T. PAN D [Concomitant]
     Indication: GASTRITIS
     Dosage: DAILY DOSE: 40 MILLIGRAM(S)
     Route: 048
     Dates: start: 20090915, end: 20091211
  6. T. EVION [Concomitant]
     Indication: LIVER FUNCTION TEST ABNORMAL
     Dosage: DAILY DOSE: 200 MILLIGRAM(S)
     Route: 048
     Dates: start: 20090827, end: 20091211
  7. T. EVION [Concomitant]
     Dosage: DAILY DOSE: 300 MILLIGRAM(S)
     Route: 048
     Dates: start: 20091215
  8. T. UDILIV [Concomitant]
     Indication: LIVER FUNCTION TEST ABNORMAL
     Dosage: DAILY DOSE: 600 MILLIGRAM(S)
     Route: 048
     Dates: start: 20090827, end: 20091211
  9. T. UDILIV [Concomitant]
     Dosage: DAILY DOSE: 200 MILLIGRAM(S)
     Route: 048
     Dates: start: 20091215

REACTIONS (4)
  - ABDOMINAL PAIN [None]
  - ASTHENIA [None]
  - BACK PAIN [None]
  - BLOOD GLUCOSE INCREASED [None]
